FAERS Safety Report 8297226-6 (Version None)
Quarter: 2012Q2

REPORT INFORMATION
  Report Type: 
  Country: None (occurrence: None)
  Receive Date: 20120416
  Receipt Date: 20120405
  Transmission Date: 20120825
  Serious: Yes (Other)
  Sender: FDA-Public Use
  Company Number: 2012SP012938

PATIENT
  Age: 24 Year
  Sex: Female

DRUGS (5)
  1. NEXPLANON [Suspect]
     Indication: PRODUCT USED FOR UNKNOWN INDICATION
     Dosage: UNK
     Dates: start: 20110121, end: 20120305
  2. CARBIMAZOLE [Concomitant]
  3. CONTRACEPTIVE PILL [Concomitant]
  4. PROPRANOLOL [Concomitant]
  5. NEXPLANON [Suspect]

REACTIONS (2)
  - PREGNANCY WITH IMPLANT CONTRACEPTIVE [None]
  - ABORTION SPONTANEOUS [None]
